FAERS Safety Report 5831271-2 (Version None)
Quarter: 2008Q3

REPORT INFORMATION
  Report Type: 
  Country: None (occurrence: None)
  Receive Date: 20080801
  Receipt Date: 20080711
  Transmission Date: 20090109
  Serious: No
  Sender: FDA-Public Use
  Company Number: US-BOEHRINGER INGELHEIM GMBH, GERMANY-2008-BP-10943BP

PATIENT
  Sex: Female

DRUGS (1)
  1. MIRAPEX [Suspect]
     Indication: FIBROMYALGIA
     Dosage: EVERY NIGHT
     Route: 048
     Dates: start: 20030101, end: 20060101

REACTIONS (4)
  - ANKLE FRACTURE [None]
  - FALL [None]
  - HYPERSOMNIA [None]
  - SLEEP DISORDER [None]
